FAERS Safety Report 15351391 (Version 5)
Quarter: 2019Q2

REPORT INFORMATION
  Report Type: Spontaneous
  Country: US (occurrence: US)
  Receive Date: 20180905
  Receipt Date: 20190429
  Transmission Date: 20190711
  Serious: Yes (Other)
  Sender: FDA-Public Use
  Company Number: US-PFIZER INC-2018354129

PATIENT
  Sex: Male

DRUGS (7)
  1. CAVERJECT [Suspect]
     Active Substance: ALPROSTADIL
     Indication: ERECTILE DYSFUNCTION
     Dosage: 10 UG, UNK
  2. CIALIS [Concomitant]
     Active Substance: TADALAFIL
     Dosage: 80 MG, UNK
     Dates: start: 20181018
  3. CAVERJECT [Suspect]
     Active Substance: ALPROSTADIL
     Indication: NEOPLASM MALIGNANT
     Dosage: 7.5 UG, UNK
  4. CIALIS [Concomitant]
     Active Substance: TADALAFIL
     Dosage: 5 MG, SOMETIME
     Dates: start: 20181016
  5. CAVERJECT [Suspect]
     Active Substance: ALPROSTADIL
     Dosage: 5 UG, UNK
  6. CAVERJECT [Suspect]
     Active Substance: ALPROSTADIL
     Dosage: UNK
  7. CAVERJECT [Suspect]
     Active Substance: ALPROSTADIL
     Dosage: 2.5 UG, UNK

REACTIONS (3)
  - Erection increased [Unknown]
  - Drug ineffective [Unknown]
  - Pain [Unknown]
